FAERS Safety Report 6864932-7 (Version None)
Quarter: 2010Q3

REPORT INFORMATION
  Report Type: 
  Country: None (occurrence: None)
  Receive Date: 20100720
  Receipt Date: 20100713
  Transmission Date: 20110219
  Serious: Yes (Hospitalization)
  Sender: FDA-Public Use
  Company Number: 2010SP034235

PATIENT
  Age: 46 Year
  Sex: Male
  Weight: 68 kg

DRUGS (4)
  1. PEG-INTRON [Suspect]
     Indication: HEPATITIS C
     Dosage: 0.5 MCG/KG;QW;SC
     Route: 058
     Dates: start: 20100107
  2. RIBAVIRIN [Suspect]
     Indication: HEPATITIS C
     Dosage: 500 MG;BID;PO
     Route: 048
     Dates: start: 20100107
  3. IPERTEN [Concomitant]
  4. PARACETAMOL [Concomitant]

REACTIONS (4)
  - DYSPHONIA [None]
  - DYSPNOEA [None]
  - HYPERGLYCAEMIA [None]
  - OEDEMA [None]
